FAERS Safety Report 20487758 (Version 3)
Quarter: 2023Q1

REPORT INFORMATION
  Report Type: Spontaneous
  Country: JP (occurrence: JP)
  Receive Date: 20220218
  Receipt Date: 20230329
  Transmission Date: 20230417
  Serious: No
  Sender: FDA-Public Use
  Company Number: JP-JNJFOC-A-CH2017-157894

PATIENT
  Age: 59 Year
  Sex: Female
  Weight: 50.4 kg

DRUGS (72)
  1. UPTRAVI [Suspect]
     Active Substance: SELEXIPAG
     Indication: Pulmonary arterial hypertension
     Dosage: 0.2 MG, BID
     Route: 048
     Dates: start: 20170622, end: 20170825
  2. UPTRAVI [Suspect]
     Active Substance: SELEXIPAG
     Dosage: 0.2 MG, BID
     Route: 048
     Dates: start: 20180126, end: 20180215
  3. UPTRAVI [Suspect]
     Active Substance: SELEXIPAG
     Dosage: 0.4 MG IN THE MORNING, 0.2 MG IN THE EVENTING
     Route: 048
     Dates: start: 20180216, end: 20180305
  4. UPTRAVI [Suspect]
     Active Substance: SELEXIPAG
     Dosage: 0.4 MG, BID
     Route: 048
     Dates: start: 20180306, end: 20180423
  5. UPTRAVI [Suspect]
     Active Substance: SELEXIPAG
     Dosage: 0.6 MG, BID
     Route: 048
     Dates: start: 20180424, end: 20180514
  6. UPTRAVI [Suspect]
     Active Substance: SELEXIPAG
     Dosage: 1.4 MG, QD
     Route: 048
     Dates: start: 20180515, end: 20180924
  7. UPTRAVI [Suspect]
     Active Substance: SELEXIPAG
     Dosage: 0.8 MG, BID
     Route: 048
     Dates: start: 20180925, end: 20181107
  8. UPTRAVI [Suspect]
     Active Substance: SELEXIPAG
     Dosage: 0.9 MG, BID
     Route: 048
     Dates: start: 20181108, end: 20181217
  9. UPTRAVI [Suspect]
     Active Substance: SELEXIPAG
     Dosage: 1.0  MG, BID
     Route: 048
     Dates: start: 20181218, end: 20181225
  10. UPTRAVI [Suspect]
     Active Substance: SELEXIPAG
     Dosage: 0.9 MG, BID
     Route: 048
     Dates: start: 20181226, end: 20190105
  11. UPTRAVI [Suspect]
     Active Substance: SELEXIPAG
     Dosage: 0.6 MG, TID
     Route: 048
     Dates: start: 20190106
  12. OPSUMIT [Suspect]
     Active Substance: MACITENTAN
     Indication: Pulmonary arterial hypertension
     Dosage: 10 MG, QD
     Route: 048
     Dates: start: 20170323
  13. OPSUMIT [Suspect]
     Active Substance: MACITENTAN
     Dosage: 10 MG, QD
     Route: 048
     Dates: start: 20180226
  14. REVATIO [Suspect]
     Active Substance: SILDENAFIL CITRATE
     Indication: Pulmonary arterial hypertension
     Route: 048
     Dates: start: 20170206
  15. REVATIO [Suspect]
     Active Substance: SILDENAFIL CITRATE
     Dosage: 20 MG, TID
     Route: 048
     Dates: start: 20170206
  16. WARFARIN [Suspect]
     Active Substance: WARFARIN
     Indication: Pulmonary arterial hypertension
     Dosage: 5.5 MG, QD
     Route: 048
     Dates: end: 20171026
  17. WARFARIN [Suspect]
     Active Substance: WARFARIN
     Dosage: 5.25 MG, QD
     Route: 048
     Dates: start: 20171027, end: 20180423
  18. WARFARIN [Suspect]
     Active Substance: WARFARIN
     Dosage: 5 MG, QD
     Route: 048
     Dates: start: 20180424, end: 20180805
  19. WARFARIN [Suspect]
     Active Substance: WARFARIN
     Route: 048
     Dates: start: 20170206, end: 20170321
  20. WARFARIN [Suspect]
     Active Substance: WARFARIN
     Route: 048
     Dates: start: 20170322, end: 20170326
  21. WARFARIN [Suspect]
     Active Substance: WARFARIN
     Route: 048
     Dates: start: 20170327, end: 20170329
  22. WARFARIN [Suspect]
     Active Substance: WARFARIN
     Route: 048
     Dates: start: 20170330, end: 20170406
  23. WARFARIN [Suspect]
     Active Substance: WARFARIN
     Route: 048
     Dates: start: 20170407, end: 20171026
  24. TRAMCET [Suspect]
     Active Substance: ACETAMINOPHEN\TRAMADOL
     Indication: Headache
     Dosage: 3 DF, QD
     Route: 048
     Dates: start: 20180605
  25. TRAMCET [Suspect]
     Active Substance: ACETAMINOPHEN\TRAMADOL
     Route: 048
     Dates: start: 20191007
  26. TRAMCET [Suspect]
     Active Substance: ACETAMINOPHEN\TRAMADOL
     Route: 048
     Dates: start: 201910
  27. CODEINE [Suspect]
     Active Substance: CODEINE
     Indication: Diarrhoea
     Route: 048
     Dates: start: 20180126
  28. CODEINE [Suspect]
     Active Substance: CODEINE
     Dosage: 2G/1-2 TIMES A DAY
     Route: 048
     Dates: end: 20190204
  29. TRAMADOL HYDROCHLORIDE [Concomitant]
     Active Substance: TRAMADOL HYDROCHLORIDE
     Indication: Headache
     Route: 048
     Dates: start: 20191008, end: 201910
  30. TRAMADOL HYDROCHLORIDE [Concomitant]
     Active Substance: TRAMADOL HYDROCHLORIDE
     Indication: Headache
     Route: 048
     Dates: start: 201910, end: 201910
  31. TRAMADOL HYDROCHLORIDE [Concomitant]
     Active Substance: TRAMADOL HYDROCHLORIDE
     Indication: Headache
     Route: 048
     Dates: start: 201910
  32. HALCION [Concomitant]
     Active Substance: TRIAZOLAM
     Indication: Insomnia
     Route: 048
     Dates: end: 20180124
  33. HALCION [Concomitant]
     Active Substance: TRIAZOLAM
     Route: 048
     Dates: start: 20180125, end: 20180128
  34. HALCION [Concomitant]
     Active Substance: TRIAZOLAM
     Route: 048
     Dates: start: 20180129, end: 20180218
  35. HALCION [Concomitant]
     Active Substance: TRIAZOLAM
     Route: 048
     Dates: start: 20180219, end: 20180305
  36. HALCION [Concomitant]
     Active Substance: TRIAZOLAM
     Dosage: 0.125 MG, QD
     Dates: start: 20180306, end: 20180326
  37. HALCION [Concomitant]
     Active Substance: TRIAZOLAM
     Dosage: 0.062 MG, QD
     Dates: start: 20180327
  38. HALCION [Concomitant]
     Active Substance: TRIAZOLAM
     Dosage: 0.5-1T/Q.D.
     Route: 048
     Dates: start: 20180605
  39. AZOSEMIDE [Concomitant]
     Active Substance: AZOSEMIDE
     Indication: Pulmonary arterial hypertension
     Dosage: 15 MG, QD
     Route: 048
     Dates: start: 20180306
  40. ALLEGRA [Concomitant]
     Active Substance: FEXOFENADINE HYDROCHLORIDE
     Indication: Rhinitis allergic
     Route: 048
     Dates: start: 20180511, end: 20180618
  41. ALLEGRA [Concomitant]
     Active Substance: FEXOFENADINE HYDROCHLORIDE
     Indication: Seasonal allergy
     Route: 048
     Dates: start: 20190305, end: 20190401
  42. ALLEGRA [Concomitant]
     Active Substance: FEXOFENADINE HYDROCHLORIDE
     Route: 048
     Dates: start: 20200303, end: 20200622
  43. TRAZODONE HYDROCHLORIDE [Concomitant]
     Active Substance: TRAZODONE HYDROCHLORIDE
     Indication: Insomnia
     Dosage: 25 MG, QD
     Dates: start: 20180130, end: 20180604
  44. TRAZODONE HYDROCHLORIDE [Concomitant]
     Active Substance: TRAZODONE HYDROCHLORIDE
     Dosage: 25-50 MG PER DAY
     Dates: start: 20180605
  45. TRAZODONE HYDROCHLORIDE [Concomitant]
     Active Substance: TRAZODONE HYDROCHLORIDE
     Dosage: 25-50 MG PER DAY
  46. TRAZODONE HYDROCHLORIDE [Concomitant]
     Active Substance: TRAZODONE HYDROCHLORIDE
     Dosage: 25-50 MG PER DAY
     Dates: start: 20190604, end: 20190701
  47. BELSOMRA [Concomitant]
     Active Substance: SUVOREXANT
     Indication: Insomnia
     Dosage: 20 MG, QD
     Dates: start: 20180129
  48. BELSOMRA [Concomitant]
     Active Substance: SUVOREXANT
     Dosage: 15-20MG, P.R.N
  49. ALESION [Concomitant]
     Active Substance: EPINASTINE HYDROCHLORIDE
     Indication: Rhinitis allergic
     Dosage: 20 MG, QD
     Route: 048
     Dates: start: 20190402, end: 20190603
  50. ALESION [Concomitant]
     Active Substance: EPINASTINE HYDROCHLORIDE
     Indication: Seasonal allergy
  51. SPIRONOLACTONE [Concomitant]
     Active Substance: SPIRONOLACTONE
     Indication: Pulmonary arterial hypertension
     Dosage: 25 MG, QD
     Route: 048
     Dates: start: 20180925
  52. MOSAPRIDE CITRATE [Concomitant]
     Active Substance: MOSAPRIDE CITRATE
     Indication: Nausea
     Route: 048
     Dates: start: 20180925
  53. MOSAPRIDE CITRATE [Concomitant]
     Active Substance: MOSAPRIDE CITRATE
     Indication: Decreased appetite
  54. BIFIDOBACTERIUM SPP. [Concomitant]
     Active Substance: BIFIDOBACTERIUM SPP.
     Indication: Nausea
     Route: 048
     Dates: start: 20181116
  55. BIFIDOBACTERIUM SPP. [Concomitant]
     Active Substance: BIFIDOBACTERIUM SPP.
     Indication: Diarrhoea
  56. LUNESTA [Concomitant]
     Active Substance: ESZOPICLONE
     Indication: Insomnia
     Dosage: 1 MG, QD
     Route: 048
     Dates: start: 20181218, end: 20181224
  57. NAUZELIN [Concomitant]
     Active Substance: DOMPERIDONE
     Indication: Nausea
     Route: 048
     Dates: start: 20181221, end: 20181227
  58. MIYA-BM [Concomitant]
     Active Substance: CLOSTRIDIUM BUTYRICUM SPORES STRAIN M-55
     Dosage: 3 DF, QD
     Dates: start: 20181225, end: 20190204
  59. LOMERIZINE HYDROCHLORIDE [Concomitant]
     Active Substance: LOMERIZINE HYDROCHLORIDE
     Indication: Headache
     Dosage: 2.5-5.0MG
     Dates: start: 20190104
  60. LOMERIZINE HYDROCHLORIDE [Concomitant]
     Active Substance: LOMERIZINE HYDROCHLORIDE
  61. REMERON [Concomitant]
     Active Substance: MIRTAZAPINE
     Indication: Insomnia
     Dosage: 0.1-0.5T/Q.D.
     Dates: start: 20190106
  62. REMERON [Concomitant]
     Active Substance: MIRTAZAPINE
     Dosage: 0.1-0.5T/Q.D.
     Dates: end: 20200107
  63. LINZESS [Concomitant]
     Active Substance: LINACLOTIDE
     Indication: Constipation
     Dosage: 0.25 MG, QD
     Route: 048
     Dates: start: 20190205, end: 20190304
  64. OXYGEN [Concomitant]
     Active Substance: OXYGEN
     Route: 055
  65. VENTAVIS [Concomitant]
     Active Substance: ILOPROST
     Indication: Pulmonary arterial hypertension
     Dosage: 0.5-5.0G/1-5 TIMES A DAY
     Route: 055
     Dates: start: 20171013, end: 20171013
  66. VENTAVIS [Concomitant]
     Active Substance: ILOPROST
     Route: 055
     Dates: start: 20170114, end: 20180125
  67. TAGAMET [Concomitant]
     Active Substance: CIMETIDINE
     Indication: Prophylaxis
     Dosage: 400 MG, QD
     Dates: start: 20190604, end: 20200121
  68. FAMOTIDINE [Concomitant]
     Active Substance: FAMOTIDINE
     Dosage: 20 MG, QD
     Dates: start: 20200122
  69. EPHEDRA SINICA STEM\HERBALS [Concomitant]
     Active Substance: EPHEDRA SINICA STEM\HERBALS
     Dosage: 3 G, QD
     Dates: start: 20191203
  70. BROTIZOLAM [Concomitant]
     Active Substance: BROTIZOLAM
     Indication: Insomnia
     Route: 048
     Dates: start: 20181225, end: 20190107
  71. TRAZODONE HYDROCHLORIDE [Concomitant]
     Active Substance: TRAZODONE HYDROCHLORIDE
     Indication: Insomnia
     Route: 048
     Dates: start: 20180130
  72. TRAZODONE HYDROCHLORIDE [Concomitant]
     Active Substance: TRAZODONE HYDROCHLORIDE
     Dosage: 25-50MG/Q.D.
     Route: 048

REACTIONS (15)
  - Vitreous haemorrhage [Recovered/Resolved]
  - Neuralgia [Recovering/Resolving]
  - Pain in jaw [Recovered/Resolved]
  - Myalgia [Recovering/Resolving]
  - Headache [Recovered/Resolved]
  - Nausea [Recovering/Resolving]
  - Constipation [Recovered/Resolved]
  - Diarrhoea [Recovered/Resolved]
  - Palpitations [Recovering/Resolving]
  - Pain in extremity [Recovering/Resolving]
  - Pain [Unknown]
  - Headache [Recovering/Resolving]
  - Arthralgia [Recovering/Resolving]
  - Decreased appetite [Recovering/Resolving]
  - Rotator cuff syndrome [Recovering/Resolving]

NARRATIVE: CASE EVENT DATE: 20170622
